FAERS Safety Report 8960193 (Version 1)
Quarter: 2012Q4

REPORT INFORMATION
  Report Type: 
  Country: FR (occurrence: FR)
  Receive Date: 20121212
  Receipt Date: 20121212
  Transmission Date: 20130627
  Serious: Yes (Hospitalization, Other)
  Sender: FDA-Public Use
  Company Number: PHHY2012FR112590

PATIENT
  Age: 56 Year
  Sex: Female

DRUGS (1)
  1. DESERNIL [Suspect]
     Indication: FACIAL NEURALGIA
     Dosage: 1 DF, Q72H (every three days)
     Route: 048
     Dates: start: 2008, end: 20121026

REACTIONS (6)
  - Retroperitoneal fibrosis [Unknown]
  - Hydronephrosis [Unknown]
  - Abdominal pain lower [Unknown]
  - Peripheral arterial occlusive disease [Unknown]
  - Peripheral artery stenosis [Unknown]
  - Inflammation [Unknown]
